FAERS Safety Report 14120321 (Version 1)
Quarter: 2017Q4

REPORT INFORMATION
  Report Type: Spontaneous
  Country: BR (occurrence: BR)
  Receive Date: 20171024
  Receipt Date: 20171024
  Transmission Date: 20180321
  Serious: Yes (Other)
  Sender: FDA-Public Use
  Company Number: PHHY2017BR153989

PATIENT
  Sex: Female

DRUGS (1)
  1. DESOGESTREL [Suspect]
     Active Substance: DESOGESTREL
     Indication: EXPOSURE DURING BREAST FEEDING
     Dosage: 1 DF, QD
     Route: 063
     Dates: start: 201710

REACTIONS (3)
  - Haematochezia [Unknown]
  - Weight gain poor [Unknown]
  - Crying [Unknown]
